FAERS Safety Report 10187198 (Version 2)
Quarter: 2014Q2

REPORT INFORMATION
  Report Type: Spontaneous
  Country: US (occurrence: US)
  Receive Date: 20140522
  Receipt Date: 20140522
  Transmission Date: 20141212
  Serious: Yes (Other)
  Sender: FDA-Public Use
  Company Number: US-JNJFOC-20140312900

PATIENT
  Sex: Male
  Weight: 88.45 kg

DRUGS (10)
  1. STELARA [Suspect]
     Indication: PSORIASIS
     Route: 058
     Dates: start: 20131223, end: 20131223
  2. STELARA [Suspect]
     Indication: PSORIASIS
     Dosage: 2 LOADING DOSES
     Route: 058
     Dates: start: 20131125, end: 20131125
  3. LISINOPRIL [Concomitant]
     Route: 065
  4. FENOFIBRATE [Concomitant]
     Route: 065
  5. AMLODIPINE [Concomitant]
     Route: 065
  6. BUPROPION [Concomitant]
     Route: 065
  7. GLIPIZIDE [Concomitant]
     Route: 065
  8. PROPRANOLOL [Concomitant]
     Route: 065
  9. METFORMIN [Concomitant]
     Route: 065
  10. LACTULOSE [Concomitant]
     Route: 065

REACTIONS (1)
  - Hepatic cancer [Unknown]
